FAERS Safety Report 6082420-5 (Version None)
Quarter: 2009Q1

REPORT INFORMATION
  Report Type: 
  Country: None (occurrence: None)
  Receive Date: 20090218
  Receipt Date: 20090209
  Transmission Date: 20090719
  Serious: Yes (Hospitalization, Other)
  Sender: FDA-Public Use
  Company Number: US-MERCK-0612USA03080

PATIENT
  Age: 67 Year
  Sex: Female

DRUGS (2)
  1. FOSAMAX [Suspect]
     Indication: OSTEOPOROSIS
     Route: 048
     Dates: start: 19980608, end: 20001201
  2. FOSAMAX [Suspect]
     Route: 048
     Dates: start: 20010123, end: 20030101

REACTIONS (19)
  - ADVERSE EVENT [None]
  - ATROPHY [None]
  - BLOOD CHOLESTEROL INCREASED [None]
  - BLOOD PRESSURE INCREASED [None]
  - BONE DENSITY DECREASED [None]
  - DENTAL CARIES [None]
  - EMPHYSEMA [None]
  - FRACTURE [None]
  - IMPAIRED HEALING [None]
  - ISCHAEMIA [None]
  - MENIERE'S DISEASE [None]
  - OSTEOMYELITIS [None]
  - OSTEONECROSIS [None]
  - POROKERATOSIS [None]
  - SINUS DISORDER [None]
  - SKIN LESION [None]
  - SKIN PAPILLOMA [None]
  - TOOTH DISORDER [None]
  - VERTIGO POSITIONAL [None]
